FAERS Safety Report 17291399 (Version 7)
Quarter: 2021Q1

REPORT INFORMATION
  Report Type: Report from Study
  Country: GB (occurrence: GB)
  Receive Date: 20200121
  Receipt Date: 20210308
  Transmission Date: 20210419
  Serious: Yes (Hospitalization)
  Sender: FDA-Public Use
  Company Number: GB-ROCHE-2520537

PATIENT
  Age: 76 Year
  Sex: Female
  Weight: 56 kg

DRUGS (11)
  1. OXALIPLATIN. [Suspect]
     Active Substance: OXALIPLATIN
     Indication: DIFFUSE LARGE B-CELL LYMPHOMA REFRACTORY
     Dosage: DATE OF MOST RECENT DOSE OF OXALIPLATIN ADMINISTERED PRIOR TO SAE ONSET: 07/JAN/2020 AT THE DOSE OF
     Route: 042
     Dates: start: 20191126
  2. MAGNESIUM ASPARTATE [Concomitant]
     Active Substance: MAGNESIUM ASPARTATE
     Route: 048
     Dates: start: 20200114, end: 20200117
  3. POTASSIUM CHLORIDE. [Concomitant]
     Active Substance: POTASSIUM CHLORIDE
     Dosage: 2 TAB
     Dates: start: 20200114, end: 20200116
  4. SODIUM HYALURONATE [Concomitant]
     Active Substance: HYALURONATE SODIUM
  5. ATEZOLIZUMAB. [Suspect]
     Active Substance: ATEZOLIZUMAB
     Indication: DIFFUSE LARGE B-CELL LYMPHOMA REFRACTORY
     Dosage: DATE OF MOST RECENT DOSE OF ATEZOLIZUMAB ADMINISTERED PRIOR TO SAE ONSET: 07/JAN/2020 AT THE DOSE OF
     Route: 042
     Dates: start: 20201210
  6. G?CSF [Suspect]
     Active Substance: GRANULOCYTE COLONY-STIMULATING FACTOR NOS
     Indication: DIFFUSE LARGE B-CELL LYMPHOMA REFRACTORY
     Dosage: DATE OF MOST RECENT DOSE OF G?CSF ADMINISTERED PRIOR TO SAE ONSET: 17/JAN/2020 AT THE DOSE OF 300 MC
     Route: 065
     Dates: start: 20191130
  7. FILGRASTIM [Concomitant]
     Active Substance: FILGRASTIM
     Dosage: 30MIL/0.5ML
     Route: 058
  8. LANSOPRAZOLE. [Concomitant]
     Active Substance: LANSOPRAZOLE
     Route: 048
  9. RITUXIMAB. [Suspect]
     Active Substance: RITUXIMAB
     Indication: DIFFUSE LARGE B-CELL LYMPHOMA REFRACTORY
     Dosage: DATE OF MOST RECENT DOSE OF RITUXIMAB ADMINISTERED PRIOR TO SAE ONSET: 07/JAN/2020 AT THE DOSE OF 14
     Route: 058
     Dates: start: 20191126
  10. GEMCITABINE. [Suspect]
     Active Substance: GEMCITABINE
     Indication: DIFFUSE LARGE B-CELL LYMPHOMA REFRACTORY
     Dosage: DATE OF MOST RECENT DOSE OF GEMCITABINE ADMINISTERED PRIOR TO SAE ONSET: 07/JAN/2020 AT THE DOSE OF
     Route: 042
     Dates: start: 20191126
  11. AMLODIPINE [Concomitant]
     Active Substance: AMLODIPINE BESYLATE
     Route: 048

REACTIONS (4)
  - Wheezing [Recovered/Resolved]
  - Nausea [Recovered/Resolved]
  - Influenza [Recovered/Resolved]
  - Tachycardia [Recovered/Resolved]

NARRATIVE: CASE EVENT DATE: 20200107
